FAERS Safety Report 9170716 (Version 1)
Quarter: 2013Q1

REPORT INFORMATION
  Report Type: Spontaneous
  Country: US (occurrence: None)
  Receive Date: 20130315
  Receipt Date: 20130315
  Transmission Date: 20140127
  Serious: Yes (Death)
  Sender: FDA-Public Use
  Company Number: None

PATIENT
  Age: 79 Year
  Sex: Male
  Weight: 42.14 kg

DRUGS (25)
  1. CABAZITAXEL [Suspect]
     Indication: TRANSITIONAL CELL CARCINOMA
     Dates: start: 20120820
  2. GABAPENTIN [Concomitant]
  3. INSULIN HUMULIN REGULAR SLIDING SCALE [Concomitant]
  4. LEVOFLOXACIN [Concomitant]
  5. MAGNESIUM SULFATE [Concomitant]
  6. METHYLPRENISONE SOD. SUCC INFUSION [Concomitant]
  7. MEROPENEM INFUSION [Concomitant]
  8. MORPHINE SULFATE [Concomitant]
  9. BENADRYL [Concomitant]
  10. POTASSIUM CHLORIDE [Concomitant]
  11. PANTOPRAZOLE [Concomitant]
  12. PIPERACILLIN/TAZOBACTAM [Concomitant]
  13. SULFAMETHOTAZOLE/ TRIMETHOPINE [Concomitant]
  14. 0.9% SODIUM CHLORIDE INFUSION [Concomitant]
  15. SODIUM CHLORIDE NASAL MIST [Concomitant]
  16. MIDAZOLAM [Concomitant]
  17. FENTANYL INJ [Concomitant]
  18. SODIUM PHOSPHATE INFUSION [Concomitant]
  19. ALTEPASE [Concomitant]
  20. ACETAMINOPHEN [Concomitant]
  21. LOVENOX [Concomitant]
  22. AZITHROMYCIN [Concomitant]
  23. CALCIUM GLULCONATE [Concomitant]
  24. CHLOHEXIDINE GLUCONATE [Concomitant]
  25. LASIX [Concomitant]

REACTIONS (10)
  - Hypoxia [None]
  - Fatigue [None]
  - Anaemia [None]
  - Pneumonia [None]
  - Lung infection [None]
  - Pleural effusion [None]
  - Respiratory failure [None]
  - Diffuse alveolar damage [None]
  - Paraneoplastic syndrome [None]
  - Toxicity to various agents [None]
